FAERS Safety Report 6710089-2 (Version None)
Quarter: 2010Q2

REPORT INFORMATION
  Report Type: 
  Country: None (occurrence: None)
  Receive Date: 20100504
  Receipt Date: 20100430
  Transmission Date: 20101027
  Serious: Yes (Life-Threatening, Hospitalization, Other)
  Sender: FDA-Public Use
  Company Number: GB-SANOFI-AVENTIS-2010SA015980

PATIENT
  Age: 70 Year
  Sex: Male
  Weight: 71.4 kg

DRUGS (10)
  1. INSULIN GLARGINE [Suspect]
     Dates: start: 20040311, end: 20090731
  2. INSULIN GLARGINE [Suspect]
     Dates: start: 20040311, end: 20090731
  3. OPTIPEN [Suspect]
     Route: 058
  4. BLINDED THERAPY [Suspect]
     Dosage: 1 CAPSULE
     Dates: start: 20040311, end: 20091119
  5. SIMVASTATIN [Concomitant]
     Dates: start: 20030301
  6. DIPYRIDAMOLE [Concomitant]
     Indication: ANTIPLATELET THERAPY
     Dates: start: 20030301, end: 20090801
  7. BISOPROLOL FUMARATE [Concomitant]
     Indication: HYPERTENSION
     Dates: start: 20030301
  8. QUINAPRIL [Concomitant]
     Indication: HYPERTENSION
     Dates: start: 20030301
  9. DOXAZOSIN [Concomitant]
     Dates: start: 20030301, end: 20090801
  10. ASPIRIN [Concomitant]
     Indication: PROPHYLAXIS
     Dates: start: 20030301, end: 20090801

REACTIONS (1)
  - RECTOSIGMOID CANCER STAGE III [None]
